FAERS Safety Report 9448475 (Version 1)
Quarter: 2013Q3

REPORT INFORMATION
  Report Type: Spontaneous
  Country: FR (occurrence: None)
  Receive Date: 20130806
  Receipt Date: 20130806
  Transmission Date: 20140515
  Serious: Yes (Hospitalization)
  Sender: FDA-Public Use
  Company Number: 1754144

PATIENT
  Age: 75 Year
  Sex: Female

DRUGS (9)
  1. CARBOPLATIN [Suspect]
     Indication: PRODUCT USED FOR UNKNOWN INDICATION
     Route: 042
     Dates: start: 20110407
  2. RITUXIMAB [Suspect]
     Indication: PRODUCT USED FOR UNKNOWN INDICATION
     Route: 042
  3. CYTARABINE [Suspect]
     Indication: PRODUCT USED FOR UNKNOWN INDICATION
     Route: 042
     Dates: start: 20110407
  4. FEMARA [Suspect]
     Indication: PRODUCT USED FOR UNKNOWN INDICATION
     Route: 048
  5. DEXAMETHASONE SODIUM PHOSPHATE [Suspect]
     Indication: PRODUCT USED FOR UNKNOWN INDICATION
     Route: 042
     Dates: start: 20110407
  6. NOVONORM [Concomitant]
  7. GLUCOPHAGE [Concomitant]
  8. LEVOTHYROX [Concomitant]
  9. COZAAR [Concomitant]

REACTIONS (8)
  - Urticaria [None]
  - Asthenia [None]
  - Pancytopenia [None]
  - Somnolence [None]
  - Hypoglycaemia [None]
  - Hypokalaemia [None]
  - Hypomagnesaemia [None]
  - Hypocalcaemia [None]
